FAERS Safety Report 7078636-1 (Version None)
Quarter: 2010Q4

REPORT INFORMATION
  Report Type: 
  Country: None (occurrence: None)
  Receive Date: 20101102
  Receipt Date: 20101027
  Transmission Date: 20110411
  Serious: Yes (Death)
  Sender: FDA-Public Use
  Company Number: JP-ASTRAZENECA-2010SE51564

PATIENT
  Sex: Female
  Weight: 48 kg

DRUGS (12)
  1. SEROQUEL [Suspect]
     Indication: DELIRIUM
     Route: 048
     Dates: start: 20090804, end: 20090901
  2. ANAFRANIL [Suspect]
     Indication: DEPRESSION
     Route: 048
     Dates: start: 20080912, end: 20080926
  3. ANAFRANIL [Suspect]
     Route: 048
     Dates: start: 20080926, end: 20090901
  4. LUVOX [Concomitant]
     Dates: start: 20080617, end: 20090901
  5. BUFFERIN [Concomitant]
  6. LASIX [Concomitant]
  7. SIMVASTATIN [Concomitant]
  8. PAXIL [Concomitant]
  9. JUVELA N [Concomitant]
  10. MAGNESIUM OXIDE [Concomitant]
  11. DOXAZOSIN MESYLATE [Concomitant]
  12. ADALAT CC [Concomitant]

REACTIONS (2)
  - SUDDEN DEATH [None]
  - VENTRICULAR FIBRILLATION [None]
